FAERS Safety Report 8145276-2 (Version None)
Quarter: 2012Q1

REPORT INFORMATION
  Report Type: 
  Country: None (occurrence: None)
  Receive Date: 20120217
  Receipt Date: 20120209
  Transmission Date: 20120608
  Serious: Yes (Hospitalization, Other)
  Sender: FDA-Public Use
  Company Number: PHHY2012SE011963

PATIENT
  Age: 86 Year
  Sex: Female

DRUGS (11)
  1. OMEPRAZOLE [Concomitant]
  2. METOPROLOL SUCCINATE [Suspect]
     Dosage: 400 MG, DAILY
     Route: 048
  3. ACETAMINOPHEN [Concomitant]
  4. FUROSEMIDE [Suspect]
  5. SPIRONOLACTONE [Suspect]
  6. METOPROLOL SUCCINATE [Suspect]
     Dosage: 100 MG, DAILY
     Route: 048
  7. SIMVASTATIN [Concomitant]
  8. NITROLINGUAL [Concomitant]
  9. WARFARIN SODIUM [Concomitant]
  10. ZOPIKLON NM PHARMA [Concomitant]
  11. TRAMADOL HCL [Concomitant]

REACTIONS (5)
  - DIZZINESS [None]
  - FATIGUE [None]
  - SYNCOPE [None]
  - INJURY [None]
  - SOMNOLENCE [None]
